FAERS Safety Report 9944993 (Version 1)
Quarter: 2014Q1

REPORT INFORMATION
  Report Type: Spontaneous
  Country: US (occurrence: US)
  Receive Date: 20140303
  Receipt Date: 20140303
  Transmission Date: 20141002
  Serious: No
  Sender: FDA-Public Use
  Company Number: US-ABBVIE-13P-163-1053081-00

PATIENT
  Sex: Female

DRUGS (13)
  1. HUMIRA [Suspect]
     Indication: CROHN^S DISEASE
     Dates: start: 2009, end: 201211
  2. HUMIRA [Suspect]
     Dates: start: 201211
  3. LIALDA [Concomitant]
     Indication: CROHN^S DISEASE
  4. CANASA [Concomitant]
     Indication: CROHN^S DISEASE
  5. PREVALITE [Concomitant]
     Indication: CROHN^S DISEASE
  6. ZANTAC [Concomitant]
     Indication: GASTROOESOPHAGEAL REFLUX DISEASE
  7. AZATHIOPRINE [Concomitant]
     Indication: CROHN^S DISEASE
  8. NEURONTIN [Concomitant]
     Indication: NEUROPATHY PERIPHERAL
  9. WELLBUTRIN [Concomitant]
     Indication: DEPRESSION
  10. RECLAST [Concomitant]
     Indication: OSTEOARTHRITIS
  11. AMBIEN [Concomitant]
     Indication: SLEEP DISORDER THERAPY
  12. FLEXARIL [Concomitant]
     Indication: BACK PAIN
  13. FLONASE [Concomitant]
     Indication: HYPERSENSITIVITY

REACTIONS (8)
  - Injection site bruising [Not Recovered/Not Resolved]
  - Injection site pain [Not Recovered/Not Resolved]
  - Injection site haemorrhage [Not Recovered/Not Resolved]
  - Colitis ulcerative [Recovered/Resolved]
  - Haematochezia [Recovered/Resolved]
  - Diarrhoea [Recovered/Resolved]
  - Abdominal pain [Recovered/Resolved]
  - Injection site bruising [Recovered/Resolved]
